FAERS Safety Report 7045386-7 (Version None)
Quarter: 2010Q4

REPORT INFORMATION
  Report Type: 
  Country: None (occurrence: None)
  Receive Date: 20101014
  Receipt Date: 20100830
  Transmission Date: 20110411
  Serious: No
  Sender: FDA-Public Use
  Company Number: US-ALLERGAN-1011227US

PATIENT
  Age: 64 Year

DRUGS (1)
  1. LATISSE [Suspect]
     Indication: GROWTH OF EYELASHES
     Dosage: UNK
     Dates: start: 20100401, end: 20100801

REACTIONS (3)
  - DIZZINESS [None]
  - HEADACHE [None]
  - VISION BLURRED [None]
